FAERS Safety Report 10375193 (Version 1)
Quarter: 2014Q3

REPORT INFORMATION
  Report Type: Spontaneous
  Country: US (occurrence: US)
  Receive Date: 20140811
  Receipt Date: 20140811
  Transmission Date: 20150326
  Serious: No
  Sender: FDA-Public Use
  Company Number: US-SHIRE-US201404745

PATIENT
  Age: 53 Year
  Sex: Female
  Weight: 73.92 kg

DRUGS (9)
  1. NUVIGIL [Concomitant]
     Active Substance: ARMODAFINIL
     Indication: DISTURBANCE IN ATTENTION
  2. VYVANSE [Suspect]
     Active Substance: LISDEXAMFETAMINE DIMESYLATE
     Indication: ATTENTION DEFICIT/HYPERACTIVITY DISORDER
     Dosage: UNK UNK (HALF OF A 20 MG CAPSULE), 2X/DAY:BID
     Route: 048
     Dates: start: 20140723, end: 20140723
  3. VYVANSE [Suspect]
     Active Substance: LISDEXAMFETAMINE DIMESYLATE
     Dosage: 20 MG, 3X/DAY:TID
     Route: 048
     Dates: start: 20140728, end: 20140803
  4. VYVANSE [Suspect]
     Active Substance: LISDEXAMFETAMINE DIMESYLATE
     Dosage: 20 MG, 2X/DAY:BID
     Route: 048
     Dates: start: 20140724, end: 20140724
  5. VYVANSE [Suspect]
     Active Substance: LISDEXAMFETAMINE DIMESYLATE
     Dosage: UNK UNK (HALF OF A 20 MG CAPSULE), 1X/DAY:QD
     Route: 048
     Dates: start: 20140727, end: 20140727
  6. NUVIGIL [Concomitant]
     Active Substance: ARMODAFINIL
     Indication: NARCOLEPSY
     Dosage: UNK (1/4 OF A 250 MG TABLET), 1X/DAY:QD
     Route: 048
     Dates: start: 201309, end: 20140728
  7. VYVANSE [Suspect]
     Active Substance: LISDEXAMFETAMINE DIMESYLATE
     Dosage: UNK UNK (HALF OF A 20 MG CAPSULE), 1X/DAY:QD
     Route: 048
     Dates: start: 20140724, end: 20140724
  8. VYVANSE [Suspect]
     Active Substance: LISDEXAMFETAMINE DIMESYLATE
     Dosage: 20 MG, 3X/DAY:TID
     Route: 048
     Dates: start: 20140727, end: 20140727
  9. VYVANSE [Suspect]
     Active Substance: LISDEXAMFETAMINE DIMESYLATE
     Dosage: 20 MG, 3X/DAY:TID
     Route: 048
     Dates: start: 20140725, end: 20140726

REACTIONS (6)
  - Hypoaesthesia [Recovered/Resolved]
  - Inappropriate schedule of drug administration [Recovered/Resolved]
  - Somnolence [Recovered/Resolved]
  - Wrong technique in drug usage process [Recovered/Resolved]
  - Feeling abnormal [Recovered/Resolved]
  - Aphasia [Not Recovered/Not Resolved]

NARRATIVE: CASE EVENT DATE: 20140723
